FAERS Safety Report 6518562-7 (Version None)
Quarter: 2009Q4

REPORT INFORMATION
  Report Type: 
  Country: None (occurrence: None)
  Receive Date: 20091227
  Receipt Date: 20091215
  Transmission Date: 20100525
  Serious: No
  Sender: FDA-Public Use
  Company Number: JP-JNJFOC-20091205654

PATIENT

DRUGS (1)
  1. DUROTEP MT [Suspect]
     Indication: DRUG USE FOR UNKNOWN INDICATION
     Route: 062

REACTIONS (2)
  - APPLICATION SITE RASH [None]
  - DRUG ADMINISTERED AT INAPPROPRIATE SITE [None]
